FAERS Safety Report 15602147 (Version 1)
Quarter: 2018Q4

REPORT INFORMATION
  Report Type: Spontaneous
  Country: BR (occurrence: BR)
  Receive Date: 20181109
  Receipt Date: 20181109
  Transmission Date: 20190205
  Serious: Yes (Hospitalization, Other)
  Sender: FDA-Public Use
  Company Number: BR-PFIZER INC-2018458045

PATIENT
  Age: 72 Year
  Sex: Female

DRUGS (9)
  1. APRESOLINA [Suspect]
     Active Substance: HYDRALAZINE HYDROCHLORIDE
     Dosage: 50 MG, 3X/DAY (EVERY 8 HOURS)
     Dates: start: 201808
  2. AAS [Suspect]
     Active Substance: ASPIRIN
     Dosage: 10 MG, 1X/DAY (AT LUNCH)
     Dates: start: 201808
  3. CONCOR [Suspect]
     Active Substance: BISOPROLOL FUMARATE
     Indication: INFARCTION
     Dosage: 5 MG, 1X/DAY (AT NIGHT)
     Dates: start: 201808
  4. LASIX [Suspect]
     Active Substance: FUROSEMIDE
     Indication: DIURETIC THERAPY
     Dosage: 200 MG, ALTERNATE DAY
     Dates: start: 201808
  5. LIPITOR [Suspect]
     Active Substance: ATORVASTATIN CALCIUM
     Dosage: 10 MG, 1X/DAY (AT NIGHT)
     Dates: start: 201808
  6. NORVASC [Suspect]
     Active Substance: AMLODIPINE BESYLATE
     Dosage: 5 MG, 2X/DAY (EVERY 12 HOURS)
     Dates: start: 201808
  7. DIOVAN [Suspect]
     Active Substance: VALSARTAN
     Dosage: 160 MG, 2X/DAY (1 TABLET EVERY 12 HOURS)
     Dates: start: 201808
  8. BISOPROLOL [Suspect]
     Active Substance: BISOPROLOL
     Dosage: UNK
     Dates: start: 201808
  9. PURAN [Suspect]
     Active Substance: LEVOTHYROXINE SODIUM
     Dosage: 50 MG, 1X/DAY (IN MORNING IN FASTING)
     Dates: start: 201808

REACTIONS (8)
  - Fatigue [Unknown]
  - Speech disorder [Not Recovered/Not Resolved]
  - Heart rate decreased [Not Recovered/Not Resolved]
  - Asthenia [Not Recovered/Not Resolved]
  - Swelling [Unknown]
  - Pulmonary oedema [Not Recovered/Not Resolved]
  - Cardiac disorder [Unknown]
  - Blood pressure abnormal [Unknown]

NARRATIVE: CASE EVENT DATE: 2018
